FAERS Safety Report 16027986 (Version 1)
Quarter: 2019Q1

REPORT INFORMATION
  Report Type: Spontaneous
  Country: US (occurrence: US)
  Receive Date: 20190304
  Receipt Date: 20190304
  Transmission Date: 20190418
  Serious: Yes (Hospitalization)
  Sender: FDA-Public Use
  Company Number: US-APOTEX-2019AP008982

PATIENT
  Sex: Female

DRUGS (8)
  1. VITAMIN D3 [Concomitant]
     Active Substance: CHOLECALCIFEROL
     Indication: VITAMIN D DECREASED
     Dosage: 2 DF, PER DAY (1000 IU TWO CHEWS A DAY BY MOUTH) SINCE 5 YEARS
     Route: 048
  2. COENZYME Q10 [Concomitant]
     Active Substance: UBIDECARENONE
     Indication: PRODUCT USED FOR UNKNOWN INDICATION
     Dosage: 1 DF, QD (LOOMG CAPSULE ONCE A DAY BY MOUTH) (SINCE 7 YEARS)
     Route: 048
  3. VITAMIN E                          /00110501/ [Concomitant]
     Active Substance: TOCOPHEROL
     Indication: SUPPLEMENTATION THERAPY
     Dosage: 2 DF, UNK (200 IU TWO CAPSULES ONCE A DAY BY MOUTH) (OFF AND ON FOR 15 YEARS)
     Route: 048
  4. CALCIUM MAGNESIUM                  /00591201/ [Concomitant]
     Indication: BONE DISORDER
     Dosage: 2 DF, QD (500/250MG TWO CAPSULES ONCE A DAY BY MOUTH) (SINCE 40 YEARS OF AGE)
     Route: 048
  5. PAXIL [Suspect]
     Active Substance: PAROXETINE HYDROCHLORIDE
     Indication: PRODUCT USED FOR UNKNOWN INDICATION
     Dosage: UNK
     Route: 065
  6. ADDERALL [Suspect]
     Active Substance: AMPHETAMINE ASPARTATE\AMPHETAMINE SULFATE\DEXTROAMPHETAMINE SACCHARATE\DEXTROAMPHETAMINE SULFATE
     Indication: ATTENTION DEFICIT/HYPERACTIVITY DISORDER
     Dosage: 30 MG, QD
     Route: 048
  7. VITAMIN C [Concomitant]
     Active Substance: ASCORBIC ACID
     Indication: SKIN DISORDER
     Dosage: 2 DF, QD (500MG TWO CHEWABLES ONCE A DAY BY MOUTH) (SINCE 3 YEARS)
     Route: 048
  8. ALPHA LIPOIC ACID [Concomitant]
     Active Substance: .ALPHA.-LIPOIC ACID
     Indication: ROSACEA
     Dosage: 1 DF, QD (L00 MG CAPSULE ONE A DAY BY MOUTH)
     Route: 048
     Dates: start: 2010

REACTIONS (3)
  - Anxiety [Unknown]
  - Toxicity to various agents [Unknown]
  - Depression [Unknown]
